FAERS Safety Report 13911300 (Version 2)
Quarter: 2017Q3

REPORT INFORMATION
  Report Type: Report from Study
  Country: CL (occurrence: CL)
  Receive Date: 20170828
  Receipt Date: 20170906
  Transmission Date: 20171127
  Serious: Yes (Other)
  Sender: FDA-Public Use
  Company Number: PHHY2017CL123954

PATIENT
  Age: 3 Year
  Sex: Male
  Weight: 12 kg

DRUGS (1)
  1. OMNITROPE [Suspect]
     Active Substance: SOMATROPIN
     Indication: GROWTH RETARDATION
     Dosage: 1.2 IU, QD
     Route: 058
     Dates: start: 20170810

REACTIONS (6)
  - Respiratory arrest [Recovering/Resolving]
  - Reduced facial expression [Recovering/Resolving]
  - Mydriasis [Recovering/Resolving]
  - Administration site haematoma [Unknown]
  - Drug administration error [Unknown]
  - Nausea [Recovering/Resolving]

NARRATIVE: CASE EVENT DATE: 20170817
